FAERS Safety Report 19665262 (Version 1)
Quarter: 2021Q3

REPORT INFORMATION
  Report Type: Report from Study
  Country: FR (occurrence: FR)
  Receive Date: 20210806
  Receipt Date: 20210806
  Transmission Date: 20211014
  Serious: Yes (Other)
  Sender: FDA-Public Use
  Company Number: FR-SUN PHARMACEUTICAL INDUSTRIES LTD-2021R1-306845

PATIENT
  Sex: Male
  Weight: 40 kg

DRUGS (3)
  1. PREDNISONE. [Suspect]
     Active Substance: PREDNISONE
     Indication: IMMUNOSUPPRESSION
     Dosage: 60 MILLIGRAM/SQ. METER, DAILY
     Route: 048
  2. DARATUMUMAB [Concomitant]
     Active Substance: DARATUMUMAB
     Indication: DRUG DEPENDENCE
     Dosage: UNK (750 MG)
     Route: 065
  3. OBINUTUZUMAB. [Concomitant]
     Active Substance: OBINUTUZUMAB
     Indication: DRUG DEPENDENCE
     Dosage: UNK (750 MG)
     Route: 065

REACTIONS (1)
  - Drug resistance [Unknown]
